FAERS Safety Report 10404370 (Version 1)
Quarter: 2014Q3

REPORT INFORMATION
  Report Type: Report from Study
  Country: KR (occurrence: KR)
  Receive Date: 20140823
  Receipt Date: 20140823
  Transmission Date: 20150326
  Serious: Yes (Other)
  Sender: FDA-Public Use
  Company Number: PHHY2014KR104563

PATIENT
  Age: 76 Year
  Sex: Male

DRUGS (5)
  1. OLOPATADINE [Concomitant]
     Active Substance: OLOPATADINE
     Indication: PRURITUS
     Dosage: 10 MG, UNK
     Route: 048
     Dates: start: 20131008, end: 20140310
  2. AMN107 [Suspect]
     Active Substance: NILOTINIB
     Indication: CHRONIC MYELOID LEUKAEMIA
     Dosage: 600 MG, PER DAY
     Route: 048
     Dates: start: 20131008
  3. METHYLPREDNISOLONE [Concomitant]
     Active Substance: METHYLPREDNISOLONE
     Indication: PRURITUS
     Route: 061
     Dates: start: 20131015, end: 20140120
  4. EMEDASTINE [Concomitant]
     Active Substance: EMEDASTINE
     Indication: PRURITUS
     Dosage: 2 MG, UNK
     Route: 048
     Dates: start: 20131015, end: 20140120
  5. CLOBETASOL PROPIONATE E [Concomitant]
     Indication: PRURITUS
     Route: 061
     Dates: start: 20131008, end: 20131008

REACTIONS (1)
  - Renal impairment [Recovered/Resolved]

NARRATIVE: CASE EVENT DATE: 20131029
